FAERS Safety Report 8581273-0 (Version None)
Quarter: 2012Q3

REPORT INFORMATION
  Report Type: 
  Country: None (occurrence: None)
  Receive Date: 20120809
  Receipt Date: 20120806
  Transmission Date: 20120928
  Serious: Yes (Other)
  Sender: FDA-Public Use
  Company Number: PHHY2012DE068370

PATIENT
  Age: 51 Year
  Sex: Female

DRUGS (2)
  1. DEXAPOLYSPECTRAN [Interacting]
  2. CLOZAPINE [Suspect]
     Dosage: 50 TO 100 MG, QD
     Route: 048

REACTIONS (2)
  - APHASIA [None]
  - DRUG INTERACTION [None]
